FAERS Safety Report 6746433-X (Version None)
Quarter: 2010Q2

REPORT INFORMATION
  Report Type: 
  Country: None (occurrence: None)
  Receive Date: 20100526
  Receipt Date: 20100513
  Transmission Date: 20101027
  Serious: Yes (Other)
  Sender: FDA-Public Use
  Company Number: 593181

PATIENT
  Sex: Female

DRUGS (2)
  1. METHOTREXATE [Suspect]
     Dosage: 10 MG MILLIGRAM(S), 1 WEEK
  2. ENBREL [Suspect]
     Dosage: 10 MG MILLIGRAM(S) ( 1 WEEK ),  50 MG MILLIGRAM

REACTIONS (4)
  - CONFUSIONAL STATE [None]
  - DIZZINESS [None]
  - HEADACHE [None]
  - MIDDLE INSOMNIA [None]
